FAERS Safety Report 4981707-4 (Version None)
Quarter: 2006Q2

REPORT INFORMATION
  Report Type: 
  Country: None (occurrence: None)
  Receive Date: 20060425
  Receipt Date: 20060130
  Transmission Date: 20061013
  Serious: Yes (Hospitalization, Other)
  Sender: FDA-Public Use
  Company Number: US-BRISTOL-MYERS SQUIBB COMPANY-13264056

PATIENT
  Age: 56 Year
  Sex: Female
  Weight: 78 kg

DRUGS (7)
  1. CARBOPLATIN [Suspect]
     Indication: BREAST CANCER METASTATIC
     Dosage: INITIATED ON 16-JAN-2006.  ADMINISTERED ON DAY 1 AND 8 EVERY 3 WEEKS.
     Route: 042
     Dates: start: 20060123, end: 20060123
  2. CAMPTOSAR [Suspect]
     Indication: BREAST CANCER METASTATIC
     Dosage: INITIATED ON 16-JAN-2006.  ADMINISTERED ON DAYS 1 AND 8 EVERY 3 WEEKS.
     Route: 042
     Dates: start: 20060123, end: 20060123
  3. ATIVAN [Concomitant]
     Indication: NAUSEA
     Dosage: ADMINISTERED EVERY 4-6 HOURS PRN.
     Route: 048
     Dates: start: 20060116
  4. CALCIUM + VITAMIN D [Concomitant]
     Indication: MEDICAL DIET
     Dosage: DOSE = CALCIUM 600/VITAMIN D 400.
     Route: 048
     Dates: start: 20060116
  5. LORTAB [Concomitant]
     Indication: BACK PAIN
     Dosage: 75/500 1-2 EVERY 4 HOURS PRN.
     Dates: start: 20060104
  6. PHENERGAN HCL [Concomitant]
     Indication: NAUSEA
     Dosage: ADMINISTERED EVERY 4 TO 6 HOURS PRN.
     Route: 048
     Dates: start: 20060116
  7. TRIAMCINOLONE [Concomitant]
     Indication: ECZEMA
     Dosage: 1%.
     Route: 061
     Dates: start: 19990101

REACTIONS (2)
  - DEHYDRATION [None]
  - NEUTROPHIL COUNT DECREASED [None]
